FAERS Safety Report 8282310-3 (Version None)
Quarter: 2012Q2

REPORT INFORMATION
  Report Type: 
  Country: None (occurrence: None)
  Receive Date: 20120413
  Receipt Date: 20120413
  Transmission Date: 20120825
  Serious: Yes (Other)
  Sender: FDA-Public Use
  Company Number: None

PATIENT
  Age: 59 Year
  Sex: Female
  Weight: 79.378 kg

DRUGS (1)
  1. LEVOFLOXACIN [Suspect]
     Indication: BRONCHITIS
     Dosage: 500 MG
     Route: 048
     Dates: start: 20120317, end: 20120327

REACTIONS (7)
  - MOVEMENT DISORDER [None]
  - TENDONITIS [None]
  - JOINT RANGE OF MOTION DECREASED [None]
  - NERVOUS SYSTEM DISORDER [None]
  - BURNING SENSATION [None]
  - ACTIVITIES OF DAILY LIVING IMPAIRED [None]
  - PAIN [None]
